FAERS Safety Report 6040522-3 (Version None)
Quarter: 2009Q1

REPORT INFORMATION
  Report Type: 
  Country: None (occurrence: None)
  Receive Date: 20090116
  Receipt Date: 20080331
  Transmission Date: 20090719
  Serious: No
  Sender: FDA-Public Use
  Company Number: US-BRISTOL-MYERS SQUIBB COMPANY-14131023

PATIENT
  Age: 64 Year
  Sex: Female
  Weight: 68 kg

DRUGS (8)
  1. ABILIFY [Suspect]
     Indication: BIPOLAR DISORDER
     Dosage: ABILIFY WAS INCREASED TO 20MG DAILY AND THEN 25 MG DAILY
  2. ZYPREXA [Concomitant]
  3. XANAX [Concomitant]
  4. ZOLOFT [Concomitant]
  5. NEURONTIN [Concomitant]
  6. KLONOPIN [Concomitant]
  7. VESICARE [Concomitant]
  8. LIPITOR [Concomitant]

REACTIONS (1)
  - MYALGIA [None]
